FAERS Safety Report 14674545 (Version 2)
Quarter: 2018Q2

REPORT INFORMATION
  Report Type: Spontaneous
  Country: US (occurrence: US)
  Receive Date: 20180323
  Receipt Date: 20180403
  Transmission Date: 20180711
  Serious: Yes (Other)
  Sender: FDA-Public Use
  Company Number: US-AKORN PHARMACEUTICALS-2018AKN00354

PATIENT
  Age: 34 Year
  Sex: Female
  Weight: 61.22 kg

DRUGS (4)
  1. MYORISAN [Suspect]
     Active Substance: ISOTRETINOIN
     Indication: ACNE CYSTIC
     Dosage: 40 MG, 1X/DAY
     Route: 048
     Dates: start: 20180110, end: 201802
  2. MYORISAN [Suspect]
     Active Substance: ISOTRETINOIN
     Dosage: 80 MG, 1X/DAY
     Route: 048
     Dates: end: 201802
  3. MYORISAN [Suspect]
     Active Substance: ISOTRETINOIN
     Indication: ACNE CYSTIC
     Dosage: 40 MG, 1X/DAY
     Route: 048
     Dates: start: 20180110, end: 201802
  4. MYORISAN [Suspect]
     Active Substance: ISOTRETINOIN
     Dosage: 20 MG, 1X/DAY (TOTAL DOSE 60 MG)
     Route: 048
     Dates: end: 201802

REACTIONS (2)
  - Myalgia [Recovering/Resolving]
  - Depression [Recovered/Resolved]

NARRATIVE: CASE EVENT DATE: 201801
